FAERS Safety Report 8006149-9 (Version None)
Quarter: 2011Q4

REPORT INFORMATION
  Report Type: 
  Country: None (occurrence: None)
  Receive Date: 20111226
  Receipt Date: 20111219
  Transmission Date: 20120403
  Serious: Yes (Other)
  Sender: FDA-Public Use
  Company Number: GB-SP-2011-12453

PATIENT
  Sex: Male

DRUGS (1)
  1. IMMUCYST [Suspect]
     Indication: PRODUCT USED FOR UNKNOWN INDICATION
     Route: 043

REACTIONS (1)
  - PHLEBITIS [None]
